FAERS Safety Report 17578280 (Version 1)
Quarter: 2020Q1

REPORT INFORMATION
  Report Type: Spontaneous
  Country: US (occurrence: US)
  Receive Date: 20200324
  Receipt Date: 20200324
  Transmission Date: 20200409
  Serious: No
  Sender: FDA-Public Use
  Company Number: US-ELI_LILLY_AND_COMPANY-US202003009808

PATIENT
  Sex: Female

DRUGS (1)
  1. BASAGLAR [Suspect]
     Active Substance: INSULIN GLARGINE
     Indication: TYPE 2 DIABETES MELLITUS
     Dosage: 57 U, BID
     Route: 058

REACTIONS (6)
  - Product dose omission [Unknown]
  - Movement disorder [Unknown]
  - Eating disorder [Unknown]
  - Dizziness [Unknown]
  - Paraesthesia [Unknown]
  - Pain [Unknown]
